FAERS Safety Report 14106747 (Version 1)
Quarter: 2017Q4

REPORT INFORMATION
  Report Type: Spontaneous
  Country: US (occurrence: US)
  Receive Date: 20171019
  Receipt Date: 20171019
  Transmission Date: 20180321
  Serious: Yes (Other)
  Sender: FDA-Public Use
  Company Number: US-PFIZER INC-2017450010

PATIENT
  Age: 63 Year
  Sex: Female
  Weight: 60.78 kg

DRUGS (6)
  1. FASLODEX [Concomitant]
     Active Substance: FULVESTRANT
     Indication: BREAST CANCER STAGE IV
     Dosage: INJECTIONS 250 AND 250 FOR A TOTAL OF 500 EVERY 30 DAYS INTO THE BUTTOCKS.
     Dates: start: 20170815
  2. LASIX [Concomitant]
     Active Substance: FUROSEMIDE
     Indication: OEDEMA PERIPHERAL
     Dosage: 20 MG EVERY MORNING
     Route: 048
     Dates: start: 1996
  3. POTASSIUM [Concomitant]
     Active Substance: POTASSIUM
     Dosage: 40 MEQ, 1X/DAY
     Route: 048
     Dates: start: 1996
  4. IBRANCE [Suspect]
     Active Substance: PALBOCICLIB
     Indication: BREAST CANCER STAGE IV
     Dosage: 125 MG, CYCLIC (125MG TABLET BY MOUTH ONCE A DAY 3 WEEKS ON AND 1 WEEK OFF)
     Route: 048
     Dates: start: 20170815
  5. ADVAIR HFA [Concomitant]
     Active Substance: FLUTICASONE PROPIONATE\SALMETEROL XINAFOATE
     Indication: ASTHMA
     Dosage: [FLUTICASONE PROPIONATE 500]/[SALMETEROL XINAFOATE 50] DISKUS INHALER 500/50 INHALE TWICE A DAY
  6. RESTASIS [Concomitant]
     Active Substance: CYCLOSPORINE
     Indication: DRY EYE
     Dosage: TWICE A DAY BOTH EYES
     Dates: start: 2008

REACTIONS (6)
  - Impaired healing [Not Recovered/Not Resolved]
  - Increased tendency to bruise [Not Recovered/Not Resolved]
  - White blood cell count decreased [Unknown]
  - Myalgia [Unknown]
  - Fatigue [Unknown]
  - Neutropenia [Not Recovered/Not Resolved]
